FAERS Safety Report 10063479 (Version 2)
Quarter: 2014Q2

REPORT INFORMATION
  Report Type: Report from Study
  Country: US (occurrence: US)
  Receive Date: 20140407
  Receipt Date: 20140407
  Transmission Date: 20141212
  Serious: Yes (Death)
  Sender: FDA-Public Use
  Company Number: US-B.I. PHARMACEUTICALS,INC./RIDGEFIELD-2014-BI-10060BI

PATIENT
  Age: 83 Year
  Sex: Female
  Weight: 56.8 kg

DRUGS (10)
  1. CHOLESTYRAMINE [Concomitant]
     Dosage: 1 ANZ
     Route: 048
  2. NEXIUM [Concomitant]
     Dosage: 40 MG
     Route: 048
  3. FUROSEMIDE [Concomitant]
     Dosage: 20 MG
     Route: 048
  4. SPIRONOLACTONE [Concomitant]
     Dosage: 25 MG
     Route: 048
  5. LOSARTAN POTASSIUM [Concomitant]
     Dosage: 50 MG
     Route: 048
  6. METOPROLOL SUCCINATE [Concomitant]
     Dosage: 25 MG
     Route: 048
  7. SIMVASTATIN [Concomitant]
     Dosage: 40 MG
     Route: 048
  8. ADVAIR 0.5 MCG INHALER [Concomitant]
     Dosage: INHALER
     Route: 065
  9. DABIGATRAN [Suspect]
     Indication: ATRIAL FIBRILLATION
     Dosage: 150 MG
     Route: 048
  10. LOPERAMIDE [Concomitant]
     Dosage: 4 MG
     Route: 048

REACTIONS (1)
  - Lower gastrointestinal haemorrhage [Fatal]
